FAERS Safety Report 10025323 (Version 3)
Quarter: 2014Q2

REPORT INFORMATION
  Report Type: Spontaneous
  Country: JP (occurrence: JP)
  Receive Date: 20140320
  Receipt Date: 20140404
  Transmission Date: 20141212
  Serious: Yes (Other)
  Sender: FDA-Public Use
  Company Number: JP-PFIZER INC-2014075133

PATIENT
  Age: 78 Year
  Sex: Female

DRUGS (2)
  1. INLYTA [Suspect]
     Dosage: 3 MG, 2X/DAY
     Route: 048
  2. INLYTA [Suspect]
     Dosage: 5 MG, 2X/DAY
     Route: 048
     Dates: start: 20140308

REACTIONS (1)
  - Haemorrhage subcutaneous [Unknown]
